FAERS Safety Report 17934857 (Version 1)
Quarter: 2020Q2

REPORT INFORMATION
  Report Type: Spontaneous
  Country: US (occurrence: US)
  Receive Date: 20200623
  Receipt Date: 20200623
  Transmission Date: 20200714
  Serious: No
  Sender: FDA-Public Use
  Company Number: None

PATIENT
  Age: 68 Year
  Sex: Female
  Weight: 63.5 kg

DRUGS (17)
  1. ADVAIR DISKUS [Concomitant]
     Active Substance: FLUTICASONE PROPIONATE\SALMETEROL XINAFOATE
  2. LORATADINE. [Concomitant]
     Active Substance: LORATADINE
  3. OXYCODONE ER [Concomitant]
     Active Substance: OXYCODONE
  4. WELLBUTRIN [Concomitant]
     Active Substance: BUPROPION HYDROCHLORIDE
  5. COMBIVENT [Concomitant]
     Active Substance: ALBUTEROL SULFATE\IPRATROPIUM BROMIDE
  6. ALBUTEROL INHALER [Concomitant]
     Active Substance: ALBUTEROL
  7. AMLODIPINE [Concomitant]
     Active Substance: AMLODIPINE BESYLATE
  8. XANAX [Concomitant]
     Active Substance: ALPRAZOLAM
  9. CABOMETYX [Suspect]
     Active Substance: CABOZANTINIB S-MALATE
     Indication: BREAST CANCER FEMALE
     Route: 048
     Dates: start: 20200306
  10. BUMEX [Concomitant]
     Active Substance: BUMETANIDE
  11. NOVOLOG [Concomitant]
     Active Substance: INSULIN ASPART
  12. ALLOPURINOL. [Concomitant]
     Active Substance: ALLOPURINOL
  13. FLUTICASONE NASAL SPRAY [Concomitant]
     Active Substance: FLUTICASONE
  14. BASAGLAR [Concomitant]
     Active Substance: INSULIN GLARGINE
  15. CYCLOBENAPRINE [Concomitant]
  16. METOPROLOL ER [Concomitant]
     Active Substance: METOPROLOL SUCCINATE
  17. SINGULAIR [Concomitant]
     Active Substance: MONTELUKAST SODIUM

REACTIONS (1)
  - Nausea [None]

NARRATIVE: CASE EVENT DATE: 20200622
